FAERS Safety Report 24683858 (Version 1)
Quarter: 2024Q4

REPORT INFORMATION
  Report Type: Spontaneous
  Country: US (occurrence: US)
  Receive Date: 20241202
  Receipt Date: 20241202
  Transmission Date: 20250114
  Serious: No
  Sender: Harrow Health
  Company Number: US-IMP-2024001010

PATIENT
  Sex: Female

DRUGS (3)
  1. VEVYE [Suspect]
     Active Substance: CYCLOSPORINE
     Indication: Dry eye
     Dosage: AT 7:30AM AND 7:30PM ONE DROP BOTH EYES
     Route: 047
  2. VEVYE [Suspect]
     Active Substance: CYCLOSPORINE
     Indication: Dry eye
     Dosage: AT 7:30AM AND 7:30PM ONE DROP BOTH EYES
     Route: 047
  3. Refresh Plus eyedrops [Concomitant]
     Indication: Product used for unknown indication
     Route: 065

REACTIONS (5)
  - Instillation site irritation [Not Recovered/Not Resolved]
  - Brain injury [Unknown]
  - Incorrect dose administered [Unknown]
  - Product quality issue [Unknown]
  - Product use complaint [Unknown]

NARRATIVE: CASE EVENT DATE: 20240101
